FAERS Safety Report 5555941-9 (Version None)
Quarter: 2007Q4

REPORT INFORMATION
  Report Type: 
  Country: None (occurrence: None)
  Receive Date: 20071213
  Receipt Date: 20071203
  Transmission Date: 20080405
  Serious: Yes (Hospitalization, Disabling, Other)
  Sender: FDA-Public Use
  Company Number: GB-PFIZER INC-2007103617

PATIENT
  Age: 62 Year
  Sex: Female

DRUGS (6)
  1. CHAMPIX [Suspect]
     Indication: SMOKING CESSATION THERAPY
     Route: 048
     Dates: start: 20071004, end: 20071112
  2. BENDROFLUMETHIAZIDE [Concomitant]
  3. LEVOTHYROXINE SODIUM [Concomitant]
     Indication: HYPOTHYROIDISM
     Route: 048
  4. NEBIVOLOL [Concomitant]
     Indication: HYPERTENSION
     Route: 048
  5. OLMESARTAN MEDOXOMIL [Concomitant]
     Indication: HYPERTENSION
     Route: 048
  6. ROSUVASTATIN [Concomitant]
     Indication: HYPERLIPIDAEMIA
     Route: 048

REACTIONS (4)
  - DIZZINESS [None]
  - HEART RATE INCREASED [None]
  - PALPITATIONS [None]
  - TACHYARRHYTHMIA [None]
